FAERS Safety Report 17853618 (Version 1)
Quarter: 2020Q2

REPORT INFORMATION
  Report Type: Spontaneous
  Country: US (occurrence: US)
  Receive Date: 20200603
  Receipt Date: 20200603
  Transmission Date: 20200714
  Serious: Yes (Other)
  Sender: FDA-Public Use
  Company Number: US-ASTRAZENECA-2020SE69276

PATIENT
  Age: 81 Year
  Sex: Female

DRUGS (9)
  1. DULOXETINE. [Suspect]
     Active Substance: DULOXETINE
     Dosage: UNKNOWN
     Route: 065
  2. ASPIRIN. [Suspect]
     Active Substance: ASPIRIN
     Dosage: UNKNOWN
     Route: 065
  3. CRANBERRY. [Suspect]
     Active Substance: CRANBERRY
     Dosage: UNKNOWN
     Route: 065
  4. RYTARY [Suspect]
     Active Substance: CARBIDOPA\LEVODOPA
     Dosage: UNKNOWN
     Route: 065
  5. MYRBETRIQ [Suspect]
     Active Substance: MIRABEGRON
     Dosage: UNKNOWN
     Route: 065
  6. TURMERIC [Suspect]
     Active Substance: HERBALS\TURMERIC
     Dosage: UNKNOWN
     Route: 065
  7. ATENOLOL. [Suspect]
     Active Substance: ATENOLOL
     Dosage: UNKNOWN
     Route: 065
  8. PRILOSEC [Suspect]
     Active Substance: OMEPRAZOLE MAGNESIUM
     Dosage: UNKNOWN
     Route: 048
  9. CELEBREX [Suspect]
     Active Substance: CELECOXIB
     Dosage: UNKNOWN
     Route: 065

REACTIONS (4)
  - Blood pressure decreased [Unknown]
  - Loss of consciousness [Unknown]
  - Presyncope [Unknown]
  - Increased tendency to bruise [Unknown]
